FAERS Safety Report 15143428 (Version 1)
Quarter: 2018Q3

REPORT INFORMATION
  Report Type: Spontaneous
  Country: US (occurrence: US)
  Receive Date: 20180618
  Receipt Date: 20180618
  Transmission Date: 20181010
  Serious: Yes (Disabling)
  Sender: FDA-Public Use
  Company Number: None

PATIENT
  Age: 42 Year
  Sex: Male
  Weight: 101.7 kg

DRUGS (11)
  1. ALBUTEROL. [Concomitant]
     Active Substance: ALBUTEROL
  2. TRULICITY [Suspect]
     Active Substance: DULAGLUTIDE
     Indication: TYPE 2 DIABETES MELLITUS
     Dates: start: 20170403, end: 20180416
  3. PROPRANOLOL [Concomitant]
     Active Substance: PROPRANOLOL HYDROCHLORIDE
  4. TRICOR [Concomitant]
     Active Substance: FENOFIBRATE
  5. LIPITOR [Concomitant]
     Active Substance: ATORVASTATIN CALCIUM
  6. CPAP [Concomitant]
     Active Substance: DEVICE
  7. CHANTIX [Concomitant]
     Active Substance: VARENICLINE TARTRATE
  8. ADDERALL [Concomitant]
     Active Substance: AMPHETAMINE ASPARTATE\AMPHETAMINE SULFATE\DEXTROAMPHETAMINE SACCHARATE\DEXTROAMPHETAMINE SULFATE
  9. LINZESS [Concomitant]
     Active Substance: LINACLOTIDE
  10. FARXIGA [Concomitant]
     Active Substance: DAPAGLIFLOZIN PROPANEDIOL
  11. DEXILANT [Concomitant]
     Active Substance: DEXLANSOPRAZOLE

REACTIONS (5)
  - Impaired gastric emptying [None]
  - Nausea [None]
  - Diarrhoea [None]
  - Abdominal pain [None]
  - Malaise [None]

NARRATIVE: CASE EVENT DATE: 20180305
